FAERS Safety Report 17186080 (Version 5)
Quarter: 2020Q1

REPORT INFORMATION
  Report Type: Report from Study
  Country: US (occurrence: US)
  Receive Date: 20191220
  Receipt Date: 20200131
  Transmission Date: 20200409
  Serious: Yes (Life-Threatening, Hospitalization, Other)
  Sender: FDA-Public Use
  Company Number: US-GILEAD-2019-0436765

PATIENT
  Age: 44 Year
  Sex: Male
  Weight: 68 kg

DRUGS (37)
  1. MESNA. [Suspect]
     Active Substance: MESNA
     Indication: PROPHYLAXIS
     Dosage: 500
     Route: 065
     Dates: start: 20191025, end: 20191026
  2. MESNA. [Suspect]
     Active Substance: MESNA
     Dosage: 500
     Route: 065
     Dates: start: 20191027, end: 20191028
  3. ESOMEPRAZOLE. [Concomitant]
     Active Substance: ESOMEPRAZOLE MAGNESIUM
     Dosage: 40,MG,DAILY
     Route: 048
     Dates: start: 20190823
  4. ANTICOAGULANT CITRATE DEXTROSE SOLUTION (ACD) NOS [Concomitant]
     Active Substance: CITRIC ACID MONOHYDRATE\DEXTROSE\SODIUM CITRATE
     Dosage: 1166,ML,ONCE
     Route: 050
     Dates: start: 20191014, end: 20191014
  5. LIDOCAINE. [Concomitant]
     Active Substance: LIDOCAINE
     Dosage: 20,ML,ONCE
     Route: 042
     Dates: start: 20191127, end: 20191127
  6. DAPSONE. [Concomitant]
     Active Substance: DAPSONE
     Dosage: 100,MG,DAILY
     Route: 048
     Dates: start: 20190917
  7. PREDNISOLONE ACETATE. [Concomitant]
     Active Substance: PREDNISOLONE ACETATE
     Dosage: 1,OTHER,FOUR TIMES DAILY
     Route: 061
     Dates: start: 20191002
  8. CYCLOGYL [Concomitant]
     Active Substance: CYCLOPENTOLATE HYDROCHLORIDE
     Dosage: 1,OTHER,THREE TIMES DAILY
     Route: 061
     Dates: start: 20191004
  9. FILGRASTIM [Concomitant]
     Active Substance: FILGRASTIM
     Dosage: 300,UG,ONCE
     Route: 058
     Dates: start: 20191230, end: 20191230
  10. VALACYCLOVIR [Concomitant]
     Active Substance: VALACYCLOVIR HYDROCHLORIDE
     Dosage: 1000,MG,DAILY
     Route: 048
     Dates: start: 20191017
  11. FLUDARABINE [Suspect]
     Active Substance: FLUDARABINE PHOSPHATE
     Indication: BONE MARROW CONDITIONING REGIMEN
     Dosage: 30
     Route: 042
     Dates: start: 20191025, end: 20191025
  12. FLUDARABINE [Suspect]
     Active Substance: FLUDARABINE PHOSPHATE
     Dosage: 30
     Route: 042
     Dates: start: 20191027, end: 20191027
  13. PROCHLORPERAZINE. [Concomitant]
     Active Substance: PROCHLORPERAZINE
     Dosage: 10,MG,AS NECESSARY
     Route: 048
     Dates: start: 20190810
  14. PAROEX [Concomitant]
     Active Substance: CHLORHEXIDINE GLUCONATE
     Dosage: 15,ML,TWICE DAILY
     Route: 050
     Dates: start: 20191009
  15. CALCIUM CHLORIDE. [Concomitant]
     Active Substance: CALCIUM CHLORIDE
     Dosage: 2000,MG,ONCE
     Route: 042
     Dates: start: 20191014, end: 20191014
  16. VIGAMOX [Concomitant]
     Active Substance: MOXIFLOXACIN HYDROCHLORIDE
     Dosage: 1,OTHER,FOUR TIMES DAILY
     Route: 061
     Dates: start: 20191002
  17. FILGRASTIM [Concomitant]
     Active Substance: FILGRASTIM
     Dosage: 300,UG,AS NECESSARY
     Route: 058
     Dates: start: 20191009, end: 20191111
  18. ALLOPURINOL. [Concomitant]
     Active Substance: ALLOPURINOL
     Dosage: 100,MG,DAILY
     Route: 048
     Dates: start: 20191114
  19. MIDAZOLAM HYDROCHLORIDE. [Concomitant]
     Active Substance: MIDAZOLAM HYDROCHLORIDE
     Dosage: 1,MG,ONCE
     Route: 042
     Dates: start: 20191016, end: 20191016
  20. AXICABTAGENE CILOLEUCEL [Suspect]
     Active Substance: AXICABTAGENE CILOLEUCEL
     Indication: DIFFUSE LARGE B-CELL LYMPHOMA
     Dosage: 68
     Route: 042
     Dates: start: 20191030, end: 20191030
  21. GABAPENTIN. [Concomitant]
     Active Substance: GABAPENTIN
     Dosage: 100,MG,THREE TIMES DAILY
     Route: 048
     Dates: start: 20190916
  22. ALLOPURINOL. [Concomitant]
     Active Substance: ALLOPURINOL
     Dosage: 300,MG,DAILY
     Route: 048
     Dates: start: 20191010
  23. FENTANYL. [Concomitant]
     Active Substance: FENTANYL
     Dosage: 50,UG,ONCE
     Route: 042
     Dates: start: 20191016, end: 20191016
  24. CYCLOPHOSPHAMIDE. [Suspect]
     Active Substance: CYCLOPHOSPHAMIDE
     Indication: BONE MARROW CONDITIONING REGIMEN
     Dosage: 500
     Route: 042
     Dates: start: 20191025, end: 20191025
  25. CYCLOPHOSPHAMIDE. [Suspect]
     Active Substance: CYCLOPHOSPHAMIDE
     Dosage: 500
     Route: 042
     Dates: start: 20191027, end: 20191027
  26. MESNA. [Suspect]
     Active Substance: MESNA
     Dosage: 500
     Route: 065
     Dates: start: 20191026, end: 20191027
  27. FILGRASTIM [Concomitant]
     Active Substance: FILGRASTIM
     Dosage: 300,UG,ONCE
     Route: 058
     Dates: start: 20191009
  28. CYCLOPHOSPHAMIDE. [Suspect]
     Active Substance: CYCLOPHOSPHAMIDE
     Dosage: 500
     Route: 042
     Dates: start: 20191026, end: 20191026
  29. ONDANSETRON [Concomitant]
     Active Substance: ONDANSETRON
     Dosage: 8,MG,AS NECESSARY
     Route: 048
     Dates: start: 20190808
  30. TRAMADOL. [Concomitant]
     Active Substance: TRAMADOL
     Dosage: 50,MG,AS NECESSARY
     Route: 048
     Dates: start: 20190823
  31. PREVIDENT [Concomitant]
     Active Substance: SODIUM FLUORIDE
     Dosage: 1,OTHER,TWICE DAILY
     Route: 050
     Dates: start: 20191009
  32. FLUDARABINE [Suspect]
     Active Substance: FLUDARABINE PHOSPHATE
     Dosage: 30
     Route: 042
     Dates: start: 20191026, end: 20191026
  33. ONDANSETRON [Concomitant]
     Active Substance: ONDANSETRON
     Dosage: 8,MG,ONCE
     Route: 042
     Dates: start: 20191205, end: 20191205
  34. SENNA LAXATIVE AND DOCUSATE SODIUM [Concomitant]
     Dosage: 8.6-50,MG,AS NECESSARY
     Route: 048
     Dates: start: 20190916
  35. KETOROLAC [Concomitant]
     Active Substance: KETOROLAC TROMETHAMINE
     Dosage: 1,OTHER,FOUR TIMES DAILY
     Route: 061
     Dates: start: 20191004
  36. LIDOCAINE. [Concomitant]
     Active Substance: LIDOCAINE
     Dosage: 10,ML,ONCE
     Route: 042
     Dates: start: 20191016, end: 20191016
  37. MIRTAZAPINE. [Concomitant]
     Active Substance: MIRTAZAPINE
     Dosage: 7.5,MG,AS NECESSARY
     Route: 048
     Dates: start: 20191106, end: 20191127

REACTIONS (10)
  - Abdominal pain [Recovered/Resolved]
  - Dysarthria [Recovered/Resolved]
  - Anaemia [Recovered/Resolved]
  - Cytomegalovirus infection [Unknown]
  - Platelet count decreased [Recovered/Resolved]
  - Encephalopathy [Unknown]
  - Pyrexia [Recovered/Resolved]
  - Pyrexia [Recovered/Resolved]
  - Neutrophil count decreased [Recovered/Resolved]
  - Hypotension [Recovered/Resolved]

NARRATIVE: CASE EVENT DATE: 20191107
